FAERS Safety Report 10408765 (Version 1)
Quarter: 2014Q3

REPORT INFORMATION
  Report Type: Spontaneous
  Country: NL (occurrence: NL)
  Receive Date: 20140826
  Receipt Date: 20140826
  Transmission Date: 20150326
  Serious: Yes (Other)
  Sender: FDA-Public Use
  Company Number: NL-JNJFOC-20140818089

PATIENT
  Age: 50 Year
  Sex: Female

DRUGS (6)
  1. TRIAMTERENE + HYDROCHLOROTHIAZIDE [Concomitant]
     Active Substance: HYDROCHLOROTHIAZIDE\TRIAMTERENE
     Route: 048
     Dates: start: 2007
  2. ATORVASTATIN [Concomitant]
     Active Substance: ATORVASTATIN
     Route: 048
     Dates: start: 2004
  3. DIOVAN [Concomitant]
     Active Substance: VALSARTAN
     Route: 048
     Dates: start: 2008
  4. TOPIRAMATE. [Suspect]
     Active Substance: TOPIRAMATE
     Indication: PRODUCT USED FOR UNKNOWN INDICATION
     Route: 048
     Dates: start: 2013
  5. LERDIP [Concomitant]
     Route: 048
     Dates: start: 2009
  6. PLAVIX [Concomitant]
     Active Substance: CLOPIDOGREL BISULFATE
     Route: 048
     Dates: start: 201310

REACTIONS (1)
  - Apnoea [Not Recovered/Not Resolved]

NARRATIVE: CASE EVENT DATE: 201402
